FAERS Safety Report 16024821 (Version 3)
Quarter: 2019Q2

REPORT INFORMATION
  Report Type: Spontaneous
  Country: PL (occurrence: PL)
  Receive Date: 20190301
  Receipt Date: 20190605
  Transmission Date: 20190711
  Serious: Yes (Other)
  Sender: FDA-Public Use
  Company Number: PL-MARINA BIOTECH, INC.-2019MARINA000551

PATIENT

DRUGS (6)
  1. CO-PRESTARIUM [Suspect]
     Active Substance: AMLODIPINE\PERINDOPRIL
     Indication: PRODUCT USE ISSUE
     Dosage: 1 (5MG/5MG) TABLET, BID (MORNING AND EVENING)
     Route: 048
     Dates: start: 201904
  2. GLUCOPHAGE [Concomitant]
     Active Substance: METFORMIN HYDROCHLORIDE
     Indication: DIABETES MELLITUS
     Dosage: 500 MG, QD
     Dates: start: 2018
  3. CO-PRESTARIUM [Suspect]
     Active Substance: AMLODIPINE\PERINDOPRIL
     Indication: HYPERTENSION
     Dosage: 1 (5MG/5MG) TABLET, QD (MORNING)
     Route: 048
     Dates: end: 201904
  4. CO-PRESTARIUM [Suspect]
     Active Substance: AMLODIPINE\PERINDOPRIL
     Indication: HYPERTENSION
     Dosage: 1 (5MG/10MG) TABLET, QD PRN
     Route: 048
     Dates: start: 2018, end: 201904
  5. PRESTARIUM NOS [Suspect]
     Active Substance: PERINDOPRIL
     Indication: HYPERTENSION
     Dosage: UNK
     Route: 048
     Dates: start: 2013
  6. POLOCARD [Concomitant]
     Active Substance: ASPIRIN
     Dosage: 150 MG, QD

REACTIONS (6)
  - Diabetes mellitus [Not Recovered/Not Resolved]
  - Heart rate decreased [Not Recovered/Not Resolved]
  - Blood pressure increased [Recovered/Resolved]
  - Asthenia [Recovered/Resolved]
  - Product use issue [Unknown]
  - Dyspnoea [Recovered/Resolved]

NARRATIVE: CASE EVENT DATE: 2017
